APPROVED DRUG PRODUCT: ATAZANAVIR SULFATE
Active Ingredient: ATAZANAVIR SULFATE
Strength: EQ 200MG BASE
Dosage Form/Route: CAPSULE;ORAL
Application: A091673 | Product #003 | TE Code: AB
Applicant: TEVA PHARMACEUTICALS USA
Approved: Apr 22, 2014 | RLD: No | RS: No | Type: RX